FAERS Safety Report 16700381 (Version 1)
Quarter: 2019Q3

REPORT INFORMATION
  Report Type: Spontaneous
  Country: FR (occurrence: FR)
  Receive Date: 20190814
  Receipt Date: 20190814
  Transmission Date: 20191004
  Serious: Yes (Hospitalization)
  Sender: FDA-Public Use
  Company Number: FR-SUN PHARMACEUTICAL INDUSTRIES LTD-2019RR-217452

PATIENT
  Age: 42 Year
  Sex: Male
  Weight: 103 kg

DRUGS (3)
  1. QUETIAPINE. [Suspect]
     Active Substance: QUETIAPINE
     Indication: POISONING DELIBERATE
     Dosage: 6900 MILLIGRAM, IN TOTAL
     Route: 048
     Dates: start: 20181208, end: 20181208
  2. DOLIPRANE [Suspect]
     Active Substance: ACETAMINOPHEN
     Indication: POISONING DELIBERATE
     Dosage: 8000 MILLIGRAM, IN TOTAL
     Route: 048
     Dates: start: 20181208, end: 20181208
  3. DEPAKOTE [Suspect]
     Active Substance: DIVALPROEX SODIUM
     Indication: POISONING DELIBERATE
     Dosage: 2000 MILLIGRAM, IN TOTAL
     Route: 048
     Dates: start: 20181208, end: 20181208

REACTIONS (4)
  - Blood lactic acid increased [Recovered/Resolved]
  - Depressed level of consciousness [Recovered/Resolved]
  - Hypotension [Recovered/Resolved]
  - Liver injury [Recovered/Resolved]

NARRATIVE: CASE EVENT DATE: 20181208
